FAERS Safety Report 7621461-0 (Version None)
Quarter: 2011Q3

REPORT INFORMATION
  Report Type: 
  Country: None (occurrence: None)
  Receive Date: 20110719
  Receipt Date: 20110713
  Transmission Date: 20111222
  Serious: Yes (Death)
  Sender: FDA-Public Use
  Company Number: US-PFIZER INC-2011140117

PATIENT
  Sex: Male
  Weight: 136 kg

DRUGS (9)
  1. OXYCODONE [Concomitant]
     Indication: BREAKTHROUGH PAIN
     Dosage: 30 MG, 3X/DAY
  2. NEURONTIN [Suspect]
     Dosage: 800 MG, 4X/DAY
     Route: 048
  3. NEURONTIN [Suspect]
     Indication: NEURALGIA
     Dosage: 400 MG, 2X/DAY
     Route: 048
     Dates: start: 20101220
  4. DURAGESIC-100 [Concomitant]
     Indication: BACK PAIN
     Dosage: 100 UG, EVERY TWO DAYS
     Route: 062
  5. FLECTOR [Concomitant]
     Dosage: APPLY AS NEEDED
     Route: 062
  6. XANAX [Concomitant]
     Indication: PANIC DISORDER
     Dosage: 1 MG, 4X/DAY
     Route: 048
     Dates: start: 20110601
  7. XANAX [Concomitant]
     Indication: ANXIETY
  8. IBUPROFEN [Concomitant]
     Dosage: 800 MG, 4X/DAY, AS NEEDED
  9. ZOLOFT [Concomitant]
     Indication: DEPRESSION
     Dosage: 50 MG, 1X/DAY
     Route: 048
     Dates: start: 20101220

REACTIONS (1)
  - DEATH [None]
